FAERS Safety Report 8176895-5 (Version None)
Quarter: 2012Q1

REPORT INFORMATION
  Report Type: 
  Country: None (occurrence: None)
  Receive Date: 20120301
  Receipt Date: 20120221
  Transmission Date: 20120608
  Serious: Yes (Congenital Anomaly, Other)
  Sender: FDA-Public Use
  Company Number: US-PFIZER INC-2010109645

PATIENT
  Sex: Male

DRUGS (6)
  1. TENORETIC 100 [Concomitant]
     Dosage: UNK
     Route: 064
  2. XANAX [Concomitant]
     Dosage: 0.5 MG, UNK
     Route: 064
  3. ZOLOFT [Suspect]
     Dosage: 100 MG, UNK
     Route: 064
     Dates: start: 20030929
  4. SULFASALAZINE [Concomitant]
     Indication: CROHN'S DISEASE
     Route: 064
  5. MULTI-VITAMINS [Concomitant]
     Route: 064
  6. ZOLOFT [Suspect]
     Dosage: 50 MG, UNK
     Route: 064
     Dates: start: 20030611

REACTIONS (3)
  - FOETAL EXPOSURE DURING PREGNANCY [None]
  - VENTRICULAR SEPTAL DEFECT [None]
  - OTITIS MEDIA ACUTE [None]
